FAERS Safety Report 7711923-X (Version None)
Quarter: 2011Q3

REPORT INFORMATION
  Report Type: 
  Country: None (occurrence: None)
  Receive Date: 20110826
  Receipt Date: 20110823
  Transmission Date: 20111222
  Serious: Yes (Hospitalization)
  Sender: FDA-Public Use
  Company Number: CA-BRISTOL-MYERS SQUIBB COMPANY-15678725

PATIENT
  Age: 68 Year
  Sex: Female

DRUGS (10)
  1. LOVENOX [Concomitant]
  2. MINOCYCLINE HCL [Concomitant]
     Dosage: APO-MINOCYCLINE TABS
  3. ERBITUX [Suspect]
     Indication: COLORECTAL CANCER
     Dosage: 2ND INF 12APR2011,INTERR 23AUG2011 LOT10C00015A1 EXP FEB2013  NO OF INF16 RECENT INFUSION 19JUL11
     Route: 042
     Dates: start: 20110405
  4. CALCIUM CARBONATE [Concomitant]
  5. VITAMIN D [Concomitant]
     Dosage: 1DF: 10000 UNITS
  6. ATENOLOL [Concomitant]
  7. DIOVAN HCT [Concomitant]
     Dosage: 1DF: 160/25MG
  8. BENADRYL [Concomitant]
     Indication: PREMEDICATION
     Dosage: 25 MG
     Route: 042
  9. LYRICA [Concomitant]
  10. RISEDRONATE SODIUM [Concomitant]
     Dosage: TEVA-RISEDRONATE

REACTIONS (6)
  - BODY TEMPERATURE INCREASED [None]
  - CHILLS [None]
  - HEADACHE [None]
  - DIZZINESS [None]
  - DIARRHOEA [None]
  - BODY TEMPERATURE FLUCTUATION [None]
